FAERS Safety Report 11217614 (Version 3)
Quarter: 2015Q3

REPORT INFORMATION
  Report Type: Report from Study
  Country: CA (occurrence: CA)
  Receive Date: 20150625
  Receipt Date: 20150821
  Transmission Date: 20151125
  Serious: Yes (Other)
  Sender: FDA-Public Use
  Company Number: PHHY2015CA072828

PATIENT
  Sex: Male

DRUGS (2)
  1. AFINITOR [Suspect]
     Active Substance: EVEROLIMUS
     Indication: BREAST CANCER METASTATIC
     Dosage: 10 MG, QOD (EVERY OTHER DAY)
     Route: 048
     Dates: start: 20150607
  2. EXEMESTANE. [Concomitant]
     Active Substance: EXEMESTANE
     Indication: PRODUCT USED FOR UNKNOWN INDICATION
     Route: 065

REACTIONS (14)
  - Sputum discoloured [Unknown]
  - Pain [Unknown]
  - Gastric cancer [Recovering/Resolving]
  - Lip dry [Unknown]
  - Dyspnoea [Unknown]
  - Cough [Unknown]
  - Pruritus [Unknown]
  - Second primary malignancy [Recovering/Resolving]
  - Skin exfoliation [Unknown]
  - Arthralgia [Unknown]
  - Erythema [Unknown]
  - Hypersensitivity [Unknown]
  - Scab [Not Recovered/Not Resolved]
  - Rash [Unknown]
